FAERS Safety Report 13078096 (Version 2)
Quarter: 2017Q1

REPORT INFORMATION
  Report Type: Spontaneous
  Country: US (occurrence: US)
  Receive Date: 20170102
  Receipt Date: 20170306
  Transmission Date: 20170428
  Serious: Yes (Hospitalization, Other)
  Sender: FDA-Public Use
  Company Number: US-SUN PHARMACEUTICAL INDUSTRIES LTD-2016US-130508

PATIENT
  Age: 34 Year
  Sex: Male

DRUGS (1)
  1. CARISOPRODOL. [Suspect]
     Active Substance: CARISOPRODOL
     Indication: PRODUCT USED FOR UNKNOWN INDICATION
     Dosage: 10 TO 30 TABLETS (5 TO 15 G), DAILY
     Route: 048

REACTIONS (10)
  - Sinus tachycardia [Unknown]
  - Drug abuse [Unknown]
  - Respiratory distress [Unknown]
  - Dependence [Unknown]
  - Agitation [Recovering/Resolving]
  - Withdrawal syndrome [Unknown]
  - Unresponsive to stimuli [Recovering/Resolving]
  - Overdose [Unknown]
  - Hypoxia [Unknown]
  - Cyanosis [Unknown]
